FAERS Safety Report 7553074-3 (Version None)
Quarter: 2011Q2

REPORT INFORMATION
  Report Type: 
  Country: None (occurrence: None)
  Receive Date: 20110616
  Receipt Date: 20110608
  Transmission Date: 20111010
  Serious: Yes (Other)
  Sender: FDA-Public Use
  Company Number: US-RB-028397-11

PATIENT
  Age: 19 Year
  Sex: Female

DRUGS (1)
  1. SUBOXONE [Suspect]
     Indication: PRODUCT USED FOR UNKNOWN INDICATION
     Dosage: SUBLINGUAL FILM- DOSING INFORMATION UNKNOWN
     Route: 065

REACTIONS (6)
  - ABDOMINAL PAIN UPPER [None]
  - ABORTION [None]
  - DRUG EXPOSURE DURING PREGNANCY [None]
  - WEIGHT DECREASED [None]
  - STRESS [None]
  - DEPRESSION [None]
